FAERS Safety Report 20179682 (Version 4)
Quarter: 2022Q1

REPORT INFORMATION
  Report Type: Spontaneous
  Country: FR (occurrence: FR)
  Receive Date: 20211214
  Receipt Date: 20220219
  Transmission Date: 20220424
  Serious: Yes (Hospitalization)
  Sender: FDA-Public Use
  Company Number: None

PATIENT
  Age: 26 Year
  Sex: Female
  Weight: 67 kg

DRUGS (15)
  1. ESOMEPRAZOLE [Suspect]
     Active Substance: ESOMEPRAZOLE
     Indication: Gastrooesophageal reflux disease
     Dosage: AT THERAPEUTIC AND LIMITED DOSES, 20 MG, QD
     Route: 065
     Dates: start: 20210514, end: 20211015
  2. ACETAMINOPHEN [Suspect]
     Active Substance: ACETAMINOPHEN
     Indication: Product used for unknown indication
     Dosage: AT THERAPEUTIC AND LIMITED DOSES,  1 TO 4 PER DAY
     Route: 065
     Dates: start: 20210507
  3. ONDANSETRON [Suspect]
     Active Substance: ONDANSETRON
     Indication: Vomiting
  4. ALMOTRIPTAN MALATE [Suspect]
     Active Substance: ALMOTRIPTAN MALATE
     Indication: Migraine with aura
     Dosage: PRESCRIBED DOSE WAS 12.5MG; HOWEVER SHE OFTEN CONSUMED MORE THAN 2 PILLS PER WEEK, WITH SEVERAL D...
     Route: 048
  5. VOGALENE [Suspect]
     Active Substance: METOPIMAZINE
     Indication: Nausea
     Dosage: 1 TO 3 PER DAY, SUPPOSITORY
     Dates: start: 20210514, end: 20210530
  6. RILPIVIRINE [Suspect]
     Active Substance: RILPIVIRINE
     Indication: HIV infection
     Dosage: 900 MG
  7. ONDANSETRON [Suspect]
     Active Substance: ONDANSETRON
     Indication: Product used for unknown indication
     Dates: start: 20210523, end: 20210530
  8. DOXYLAMINE SUCCINATE [Suspect]
     Active Substance: DOXYLAMINE SUCCINATE
     Indication: Product used for unknown indication
     Dates: start: 20210514, end: 20210530
  9. POLYETHYLENE GLYCOLS [Suspect]
     Active Substance: POLYETHYLENE GLYCOLS
     Indication: Product used for unknown indication
     Dosage: 1 TO 2 PER DAY
     Route: 048
     Dates: start: 20210507
  10. CABOTEGRAVIR [Suspect]
     Active Substance: CABOTEGRAVIR
     Indication: HIV infection
     Dosage: 600 MG
  11. TRUVADA [Suspect]
     Active Substance: EMTRICITABINE\TENOFOVIR DISOPROXIL FUMARATE
     Indication: HIV infection
     Dosage: QD
     Route: 048
     Dates: start: 20210726, end: 20211015
  12. DOLUTEGRAVIR [Suspect]
     Active Substance: DOLUTEGRAVIR
     Indication: HIV infection
     Dosage: 50 MG, BID
     Dates: start: 20210726
  13. BICTEGRAVIR\EMTRICITABINE\TENOFOVIR ALAFENAMIDE [Suspect]
     Active Substance: BICTEGRAVIR\EMTRICITABINE\TENOFOVIR ALAFENAMIDE
     Indication: HIV infection
     Dosage: QD
     Route: 048
     Dates: start: 20190228, end: 20210505
  14. EMTRICITABINE\RILPIVIRINE\TENOFOVIR DISOPROXIL FUMARATE [Suspect]
     Active Substance: EMTRICITABINE\RILPIVIRINE\TENOFOVIR DISOPROXIL FUMARATE
     Indication: HIV infection
     Dosage: QD
     Route: 048
     Dates: start: 20210505, end: 20210726
  15. VERAPAMIL [Concomitant]
     Active Substance: VERAPAMIL HYDROCHLORIDE

REACTIONS (8)
  - Hypoperfusion [Unknown]
  - Placental calcification [Unknown]
  - Oligohydramnios [Unknown]
  - Foetal growth restriction [Unknown]
  - Premature delivery [Unknown]
  - Placental disorder [Unknown]
  - Intentional overdose [Unknown]
  - Exposure during pregnancy [Unknown]

NARRATIVE: CASE EVENT DATE: 20210726
